FAERS Safety Report 10413136 (Version 2)
Quarter: 2014Q3

REPORT INFORMATION
  Report Type: Spontaneous
  Country: GB (occurrence: GB)
  Receive Date: 20140827
  Receipt Date: 20140921
  Transmission Date: 20150326
  Serious: Yes (Hospitalization, Other)
  Sender: FDA-Public Use
  Company Number: GB-BRISTOL-MYERS SQUIBB COMPANY-21313549

PATIENT
  Age: 44 Year
  Sex: Female
  Weight: 94 kg

DRUGS (9)
  1. ESCITALOPRAM [Suspect]
     Active Substance: ESCITALOPRAM OXALATE
  2. LANTUS [Concomitant]
     Active Substance: INSULIN GLARGINE
  3. RAMIPRIL. [Suspect]
     Active Substance: RAMIPRIL
  4. FLUCLOXACILLIN [Concomitant]
     Active Substance: FLUCLOXACILLIN
  5. PARACETAMOL [Concomitant]
     Active Substance: ACETAMINOPHEN
  6. CODEINE [Concomitant]
     Active Substance: CODEINE
  7. FORXIGA [Suspect]
     Active Substance: DAPAGLIFLOZIN
     Indication: DIABETES MELLITUS
     Route: 048
     Dates: start: 20140624, end: 20140807
  8. FUCIBET [Concomitant]
  9. HUMALOG [Concomitant]
     Active Substance: INSULIN LISPRO

REACTIONS (5)
  - Blister [Unknown]
  - Cheilitis [Unknown]
  - Stevens-Johnson syndrome [Unknown]
  - Mucosal inflammation [Unknown]
  - Stomatitis [Unknown]

NARRATIVE: CASE EVENT DATE: 20140801
